FAERS Safety Report 7569596-5 (Version None)
Quarter: 2011Q2

REPORT INFORMATION
  Report Type: 
  Country: None (occurrence: None)
  Receive Date: 20110621
  Receipt Date: 20110621
  Transmission Date: 20111010
  Serious: Yes (Hospitalization, Other)
  Sender: FDA-Public Use
  Company Number: None

PATIENT
  Sex: Female
  Weight: 59.8748 kg

DRUGS (1)
  1. AZITHROMYCIN [Suspect]

REACTIONS (5)
  - VOMITING [None]
  - DYSPHONIA [None]
  - COLD SWEAT [None]
  - ABDOMINAL PAIN UPPER [None]
  - DYSPNOEA [None]
